FAERS Safety Report 20539179 (Version 1)
Quarter: 2022Q1

REPORT INFORMATION
  Report Type: Spontaneous
  Country: CA (occurrence: CA)
  Receive Date: 20220302
  Receipt Date: 20220302
  Transmission Date: 20220423
  Serious: Yes (Other)
  Sender: FDA-Public Use
  Company Number: CA-JNJFOC-20210929192

PATIENT
  Age: 40 Year
  Sex: Male

DRUGS (4)
  1. REMICADE [Suspect]
     Active Substance: INFLIXIMAB
     Indication: Ankylosing spondylitis
     Dosage: REMICADE VIAL 100.00 MG
     Route: 042
  2. INDOMETHACIN [Concomitant]
     Active Substance: INDOMETHACIN
  3. METHOTREXATE [Concomitant]
     Active Substance: METHOTREXATE
  4. SULFASALAZINE [Concomitant]
     Active Substance: SULFASALAZINE

REACTIONS (26)
  - Shock [Recovered/Resolved]
  - Panic attack [Recovered/Resolved]
  - Anxiety [Recovered/Resolved]
  - Asthenia [Recovered/Resolved]
  - Discouragement [Recovered/Resolved]
  - Fear of injection [Recovered/Resolved]
  - Gait disturbance [Recovered/Resolved]
  - Impatience [Recovered/Resolved]
  - Malaise [Recovered/Resolved]
  - Swelling [Recovered/Resolved]
  - Stress [Recovered/Resolved]
  - Pallor [Recovered/Resolved]
  - Vision blurred [Recovered/Resolved]
  - Poor venous access [Recovered/Resolved]
  - Oral pain [Recovered/Resolved]
  - Infusion site erythema [Recovered/Resolved]
  - Infusion site pain [Recovered/Resolved]
  - Insomnia [Recovered/Resolved]
  - Dizziness [Recovered/Resolved]
  - Hyperhidrosis [Recovered/Resolved]
  - Hypertension [Recovered/Resolved]
  - Fatigue [Recovered/Resolved]
  - Pain [Recovered/Resolved]
  - Condition aggravated [Recovered/Resolved]
  - Drug ineffective [Recovered/Resolved]
  - Off label use [Recovered/Resolved]
